FAERS Safety Report 4995187-6 (Version None)
Quarter: 2006Q2

REPORT INFORMATION
  Report Type: 
  Country: None (occurrence: None)
  Receive Date: 20060508
  Receipt Date: 20060126
  Transmission Date: 20061013
  Serious: Yes (Hospitalization)
  Sender: FDA-Public Use
  Company Number: US-MERCK-0601USA03613

PATIENT
  Age: 72 Year
  Sex: Female
  Weight: 55 kg

DRUGS (22)
  1. VIOXX [Suspect]
     Indication: OSTEOARTHRITIS
     Route: 048
     Dates: start: 20010101, end: 20040901
  2. AMOXICILLIN [Concomitant]
     Route: 065
  3. ATENOLOL [Concomitant]
     Route: 065
     Dates: start: 20030816, end: 20050831
  4. BETAMETHASONE VALERATE [Concomitant]
     Route: 065
  5. LIPITOR [Concomitant]
     Route: 065
  6. PREMARIN [Concomitant]
     Route: 065
     Dates: start: 19980608, end: 20031215
  7. BETAMETHASONE DIPROPIONATE AND CLOTRIMAZOLE [Concomitant]
     Route: 065
  8. DIFLUCAN [Concomitant]
     Route: 065
  9. FOSAMAX [Concomitant]
     Route: 065
  10. LEVAQUIN [Concomitant]
     Route: 065
  11. LISINOPRIL [Concomitant]
     Route: 065
  12. MACROBID [Concomitant]
     Route: 065
  13. NORTRIPTYLINE [Concomitant]
     Route: 065
     Dates: start: 20020122, end: 20050712
  14. NEURONTIN [Concomitant]
     Route: 065
     Dates: start: 20010821, end: 20031215
  15. NITROFURANT [Concomitant]
     Route: 065
  16. OPTIVAR OPHTHALMIC SOLUTION [Concomitant]
     Route: 065
  17. ORPHENADRINE [Concomitant]
     Route: 065
  18. RANITIDINE [Concomitant]
     Route: 065
  19. TRIAMTERENE AND HYDROCHLOROTHIAZIDE [Concomitant]
     Route: 065
  20. VISICOL [Concomitant]
     Route: 065
  21. ZITHROMAX [Concomitant]
     Route: 065
  22. NEOMYCIN [Concomitant]
     Route: 065

REACTIONS (1)
  - CEREBROVASCULAR ACCIDENT [None]
